FAERS Safety Report 18553155 (Version 2)
Quarter: 2020Q4

REPORT INFORMATION
  Report Type: Spontaneous
  Country: LT (occurrence: LT)
  Receive Date: 20201127
  Receipt Date: 20201215
  Transmission Date: 20210114
  Serious: Yes (Hospitalization, Other)
  Sender: FDA-Public Use
  Company Number: LT-TOPROL-202000095

PATIENT
  Age: 80 Year
  Sex: Female
  Weight: 80 kg

DRUGS (2)
  1. BETALOC ZOK [Suspect]
     Active Substance: METOPROLOL SUCCINATE
     Indication: SUICIDE ATTEMPT
     Dosage: 95 AND THE UNIT OF MEASUREMENT NOT SPECIFIED.
     Route: 048
     Dates: start: 20201019, end: 20201019
  2. BROMAZEPAM [Concomitant]
     Active Substance: BROMAZEPAM
     Indication: PRODUCT USED FOR UNKNOWN INDICATION
     Route: 065
     Dates: start: 20201019, end: 20201019

REACTIONS (5)
  - Delirium [Unknown]
  - Suicide attempt [Unknown]
  - Intentional overdose [Unknown]
  - Respiratory failure [Unknown]
  - Somnolence [Unknown]

NARRATIVE: CASE EVENT DATE: 20201019
